FAERS Safety Report 10218549 (Version 1)
Quarter: 2014Q2

REPORT INFORMATION
  Report Type: Spontaneous
  Country: BR (occurrence: BR)
  Receive Date: 20140605
  Receipt Date: 20140605
  Transmission Date: 20141212
  Serious: Yes (Other)
  Sender: FDA-Public Use
  Company Number: BR-JNJFOC-20140601026

PATIENT
  Age: 76 Year
  Sex: Female
  Weight: 74 kg

DRUGS (8)
  1. SIMPONI [Suspect]
     Indication: RHEUMATOID ARTHRITIS
     Route: 058
     Dates: start: 20140528
  2. SIMPONI [Suspect]
     Indication: RHEUMATOID ARTHRITIS
     Route: 058
     Dates: start: 2013
  3. FOLIC ACID [Concomitant]
     Route: 065
  4. CHOLECALCIFEROL [Concomitant]
     Route: 065
  5. METHOTREXATE [Concomitant]
     Route: 065
  6. KETOROLAC TROMETAMOL [Concomitant]
     Indication: ANALGESIC THERAPY
     Route: 065
  7. CALCIUM [Concomitant]
     Route: 065
  8. VITAMIN B1 [Concomitant]
     Route: 065

REACTIONS (5)
  - Laryngeal oedema [Unknown]
  - Pruritus [Not Recovered/Not Resolved]
  - Hypersensitivity [Unknown]
  - Tonsillar disorder [Not Recovered/Not Resolved]
  - Tongue disorder [Not Recovered/Not Resolved]
